FAERS Safety Report 16838740 (Version 1)
Quarter: 2019Q4

REPORT INFORMATION
  Report Type: Spontaneous
  Country: US (occurrence: US)
  Receive Date: 20190920
  Receipt Date: 20190920
  Transmission Date: 20200122
  Serious: Yes (Other)
  Sender: FDA-Public Use
  Company Number: None

PATIENT
  Age: 24 Year
  Sex: Female
  Weight: 65 kg

DRUGS (1)
  1. BUROSUMAB [Suspect]
     Active Substance: BUROSUMAB
     Indication: HEREDITARY HYPOPHOSPHATAEMIC RICKETS
     Dosage: ?          OTHER FREQUENCY:EVERY 4 WEEKS;?
     Route: 058
     Dates: start: 20190815

REACTIONS (7)
  - Nausea [None]
  - Pain in extremity [None]
  - Middle insomnia [None]
  - Vomiting [None]
  - Back pain [None]
  - Hypophosphataemia [None]
  - Headache [None]

NARRATIVE: CASE EVENT DATE: 20190916
